FAERS Safety Report 9502938 (Version 1)
Quarter: 2013Q1

REPORT INFORMATION
  Report Type: Spontaneous
  Country: US (occurrence: None)
  Receive Date: 20130225
  Receipt Date: 20130225
  Transmission Date: 20140127
  Serious: Yes (Other)
  Sender: FDA-Public Use
  Company Number: 366355

PATIENT
  Age: 74 Year
  Sex: Female

DRUGS (10)
  1. VICTOZA (LIRAGLITUDE) SOLOUTION FOR INJECTION, 6 MG/ML [Suspect]
     Indication: TYPE 2 DIABETES MELLITUS
     Route: 058
     Dates: start: 20110321, end: 20121204
  2. LEVEMIR FLEXPEN (INSULIN DETEMIR) SOLUTION FOR INJECTION, .0024 MOL/L [Concomitant]
  3. ASPIRIN E.C (ACETYLSLICYLIC ACID) [Concomitant]
  4. PROCARDIA /00340701/ (NIFEDIPINE) [Concomitant]
  5. BIDIL (HYDRALAZINE HYDROCHLORIDE, ISOSORBIDE DINITRATE( [Concomitant]
  6. EDARBYCLOR (AZILSARTAN MEDOXOMIL,CHLORTALIDONE) [Concomitant]
  7. FUROSEMIDE (FUROSEMIDE) [Concomitant]
  8. LANTUS (INSULIN GLARGINE) [Concomitant]
  9. FEMARA (LETROZOLE) [Concomitant]
  10. ZOFRAN /00955301/ (ONDANSETRON) [Concomitant]

REACTIONS (1)
  - Renal failure chronic [None]
